FAERS Safety Report 9333361 (Version 1)
Quarter: 2013Q2

REPORT INFORMATION
  Report Type: Spontaneous
  Country: GB (occurrence: GB)
  Receive Date: 20130606
  Receipt Date: 20130606
  Transmission Date: 20140414
  Serious: Yes (Death)
  Sender: FDA-Public Use
  Company Number: GB-009507513-1306GBR002241

PATIENT
  Age: 49 Year
  Sex: Male
  Weight: 85 kg

DRUGS (4)
  1. MIRTAZAPINE [Suspect]
     Indication: ANXIETY
     Dosage: 45 MG, QD
     Route: 048
     Dates: start: 20130412, end: 20130415
  2. MIRTAZAPINE [Suspect]
     Indication: DEPRESSION
     Dosage: 30 MG, QD
     Route: 048
     Dates: start: 20130319, end: 20130412
  3. CITALOPRAM [Concomitant]
     Indication: ANXIETY
     Dosage: UNK
     Dates: end: 20130319
  4. CITALOPRAM [Concomitant]
     Indication: DEPRESSION

REACTIONS (1)
  - Completed suicide [Fatal]
